FAERS Safety Report 9382774 (Version 4)
Quarter: 2015Q1

REPORT INFORMATION
  Report Type: Spontaneous
  Country: BR (occurrence: BR)
  Receive Date: 20130703
  Receipt Date: 20150306
  Transmission Date: 20150721
  Serious: Yes (Hospitalization, Other)
  Sender: FDA-Public Use
  Company Number: BR-PFIZER INC-2013196895

PATIENT
  Age: 55 Year
  Sex: Female
  Weight: 52 kg

DRUGS (10)
  1. GLIFAGE [Concomitant]
     Active Substance: METFORMIN HYDROCHLORIDE
     Indication: HYPERTENSION
     Dosage: 2 TABLETS AT NIGHT
     Dates: start: 2005
  2. INSULIN [Concomitant]
     Active Substance: INSULIN NOS
     Indication: DIABETES MELLITUS
     Dosage: UNK, ONCE IN THE MORNING IN FASTING AND ONCE AT NIGHT
     Dates: start: 2002
  3. ISOSORBIDE MONONITRATE. [Concomitant]
     Active Substance: ISOSORBIDE MONONITRATE
     Indication: NITRATE COMPOUND THERAPY
     Dosage: 1 TABLET EVERY 8 HOURS
     Dates: start: 2005
  4. ATENOLOL. [Concomitant]
     Active Substance: ATENOLOL
     Indication: HYPERTENSION
     Dosage: 2 TABLETS EVERY 12 HOURS
     Dates: start: 2005
  5. CLOPIDOGREL [Concomitant]
     Active Substance: CLOPIDOGREL BISULFATE
     Indication: HYPERTENSION
     Dosage: 1 TABLET A DAY
     Dates: start: 2005
  6. OLMETEC HCT [Suspect]
     Active Substance: HYDROCHLOROTHIAZIDE\OLMESARTAN MEDOXOMIL
     Dosage: 40 MG/25 MG, UNK
     Route: 048
     Dates: start: 20070914
  7. OLMETEC HCT [Suspect]
     Active Substance: HYDROCHLOROTHIAZIDE\OLMESARTAN MEDOXOMIL
     Dosage: 40 MG/12.5 MG, DAILY
     Route: 048
     Dates: start: 20110630
  8. NORVASC [Suspect]
     Active Substance: AMLODIPINE BESYLATE
     Dosage: 5 MG, 2X/DAY
     Route: 048
  9. AAS [Concomitant]
     Active Substance: ASPIRIN
     Indication: ANTICOAGULANT THERAPY
     Dosage: 2 TABLETS A DAY
     Dates: start: 2005
  10. LIPISTAT [Concomitant]
     Indication: HYPERTENSION
     Dosage: 1 TABLET AT NIGHT
     Dates: start: 2005

REACTIONS (6)
  - Haemorrhage [Unknown]
  - Cerebrovascular accident [Unknown]
  - Myocardial infarction [Unknown]
  - Emotional disorder [Unknown]
  - Angiopathy [Unknown]
  - Cerebrovascular accident [Unknown]

NARRATIVE: CASE EVENT DATE: 2011
